FAERS Safety Report 5838201-8 (Version None)
Quarter: 2008Q3

REPORT INFORMATION
  Report Type: 
  Country: None (occurrence: None)
  Receive Date: 20080808
  Receipt Date: 20080730
  Transmission Date: 20090109
  Serious: Yes (Congenital Anomaly)
  Sender: FDA-Public Use
  Company Number: CH-JNJFOC-20080800553

PATIENT

DRUGS (1)
  1. REMICADE [Suspect]
     Indication: DRUG EXPOSURE DURING PREGNANCY

REACTIONS (4)
  - ABORTION INDUCED [None]
  - ALPHA 1 FOETOPROTEIN INCREASED [None]
  - MATERNAL DRUGS AFFECTING FOETUS [None]
  - SPINA BIFIDA [None]
